FAERS Safety Report 19630870 (Version 1)
Quarter: 2021Q3

REPORT INFORMATION
  Report Type: Spontaneous
  Country: US (occurrence: US)
  Receive Date: 20210728
  Receipt Date: 20210728
  Transmission Date: 20211014
  Serious: No
  Sender: FDA-Public Use
  Company Number: US-SA-2021SA246644

PATIENT
  Age: 41 Year
  Sex: Male

DRUGS (10)
  1. TACROLIMUS. [Concomitant]
     Active Substance: TACROLIMUS
  2. AZELASTINE. [Concomitant]
     Active Substance: AZELASTINE HYDROCHLORIDE
  3. TRIAMCINOLONE [Concomitant]
     Active Substance: TRIAMCINOLONE
  4. ALBUTEROL SULFATE. [Concomitant]
     Active Substance: ALBUTEROL SULFATE
  5. PREDNISONE. [Concomitant]
     Active Substance: PREDNISONE
  6. WIXELA INHUB [Concomitant]
     Active Substance: FLUTICASONE PROPIONATE\SALMETEROL XINAFOATE
  7. HYDROXYZINE HCL [Concomitant]
     Active Substance: HYDROXYZINE HYDROCHLORIDE
  8. DUPIXENT [Suspect]
     Active Substance: DUPILUMAB
     Route: 058
  9. FLUTICASONE. [Concomitant]
     Active Substance: FLUTICASONE
  10. MONTELUKAST [Concomitant]
     Active Substance: MONTELUKAST SODIUM

REACTIONS (1)
  - Dry eye [Not Recovered/Not Resolved]

NARRATIVE: CASE EVENT DATE: 20210721
